FAERS Safety Report 16856280 (Version 3)
Quarter: 2019Q4

REPORT INFORMATION
  Report Type: Spontaneous
  Country: FR (occurrence: FR)
  Receive Date: 20190926
  Receipt Date: 20191220
  Transmission Date: 20200122
  Serious: Yes (Death, Other)
  Sender: FDA-Public Use
  Company Number: FR-MYLANLABS-2019M1089684

PATIENT
  Age: 70 Year
  Sex: Female
  Weight: 80 kg

DRUGS (5)
  1. SERTRALINE [Concomitant]
     Active Substance: SERTRALINE HYDROCHLORIDE
     Indication: PRODUCT USED FOR UNKNOWN INDICATION
     Dosage: UNK
  2. OXAZEPAM. [Concomitant]
     Active Substance: OXAZEPAM
     Indication: PRODUCT USED FOR UNKNOWN INDICATION
     Dosage: UNK
  3. ACEBUTOLOL [Suspect]
     Active Substance: ACEBUTOLOL
     Indication: CARDIAC FAILURE
     Dosage: UNK
     Route: 048
  4. ACEBUTOLOL [Suspect]
     Active Substance: ACEBUTOLOL
     Indication: MITRAL VALVE INCOMPETENCE
  5. ALPRAZOLAM. [Concomitant]
     Active Substance: ALPRAZOLAM
     Indication: PRODUCT USED FOR UNKNOWN INDICATION
     Dosage: UNK, SIX ALPRAZOLAM PILLS
     Route: 065

REACTIONS (7)
  - Asphyxia [Fatal]
  - Intentional product misuse [Fatal]
  - Toxicity to various agents [Fatal]
  - Drug abuse [Unknown]
  - Pulmonary oedema [Fatal]
  - Poisoning deliberate [Fatal]
  - Intentional overdose [Fatal]
